FAERS Safety Report 5841374-4 (Version None)
Quarter: 2008Q3

REPORT INFORMATION
  Report Type: 
  Country: None (occurrence: None)
  Receive Date: 20080812
  Receipt Date: 20080731
  Transmission Date: 20090109
  Serious: Yes (Hospitalization)
  Sender: FDA-Public Use
  Company Number: US-KINGPHARMUSA00001-K200800916

PATIENT

DRUGS (1)
  1. SKELAXIN [Suspect]
     Indication: SCOLIOSIS
     Dosage: 800 MG, SINGLE
     Route: 048
     Dates: start: 20060104, end: 20060104

REACTIONS (6)
  - GALLBLADDER DISORDER [None]
  - OEDEMA PERIPHERAL [None]
  - PROSTATIC DISORDER [None]
  - PULMONARY EMBOLISM [None]
  - RENAL DISORDER [None]
  - THROMBOSIS [None]
